FAERS Safety Report 6386528-6 (Version None)
Quarter: 2009Q4

REPORT INFORMATION
  Report Type: 
  Country: None (occurrence: None)
  Receive Date: 20091002
  Receipt Date: 20090605
  Transmission Date: 20100525
  Serious: No
  Sender: FDA-Public Use
  Company Number: US-ASTRAZENECA-2009UW08335

PATIENT
  Age: 65 Year
  Sex: Female
  Weight: 93.9 kg

DRUGS (9)
  1. ARIMIDEX [Suspect]
     Route: 048
     Dates: start: 20060101
  2. NEXIUM [Concomitant]
     Route: 048
  3. PAXIL [Concomitant]
  4. XANAX [Concomitant]
  5. HYDROCHLOROTHIAZIDE [Concomitant]
  6. POTASSIUM CHLORIDE [Concomitant]
  7. FLEXERIL [Concomitant]
  8. VICODIN [Concomitant]
  9. ZOMIG [Concomitant]

REACTIONS (4)
  - CONSTIPATION [None]
  - HOT FLUSH [None]
  - HYPERHIDROSIS [None]
  - INSOMNIA [None]
